FAERS Safety Report 7330327-5 (Version None)
Quarter: 2011Q1

REPORT INFORMATION
  Report Type: 
  Country: None (occurrence: None)
  Receive Date: 20110304
  Receipt Date: 20110221
  Transmission Date: 20110831
  Serious: Yes (Other)
  Sender: FDA-Public Use
  Company Number: US-PAR PHARMACEUTICAL, INC-2011SCPR002722

PATIENT
  Age: 43 Year
  Sex: Male

DRUGS (4)
  1. DEXAMETHASONE [Suspect]
     Indication: ANAPLASTIC ASTROCYTOMA
     Dosage: UNK
     Route: 065
  2. ETOPOSIDE [Suspect]
     Indication: ANAPLASTIC ASTROCYTOMA
     Dosage: 50 MG/M^2, FOR 21 DAYS OF A 28 DAY CYCLE
     Route: 065
  3. TEMOZOLOMIDE [Suspect]
     Indication: ANAPLASTIC ASTROCYTOMA
     Dosage: UNK
     Route: 048
  4. BEVACIZUMAB [Suspect]
     Indication: ANAPLASTIC ASTROCYTOMA
     Dosage: 10 MG/KG, EVERY 2 WEEKS.
     Route: 065

REACTIONS (5)
  - SKIN STRIAE [None]
  - CUSHINGOID [None]
  - SKIN ULCER [None]
  - TOXICITY TO VARIOUS AGENTS [None]
  - MYOPATHY [None]
